FAERS Safety Report 4301891-5 (Version None)
Quarter: 2004Q1

REPORT INFORMATION
  Report Type: 
  Country: None (occurrence: None)
  Receive Date: 20040223
  Receipt Date: 20030411
  Transmission Date: 20041129
  Serious: Yes (Hospitalization, Disabling)
  Sender: FDA-Public Use
  Company Number: WAES 0304USA01260

PATIENT
  Age: 55 Year
  Sex: Female
  Weight: 64 kg

DRUGS (9)
  1. METHOTREXATE [Concomitant]
     Indication: ARTHRITIS
     Dates: start: 20010101
  2. VIOXX [Suspect]
     Indication: PAIN IN EXTREMITY
     Route: 048
  3. FOSAMAX [Concomitant]
  4. ATACAND [Concomitant]
     Indication: HYPERTENSION
  5. ESTRATEST [Concomitant]
     Indication: HORMONE REPLACEMENT THERAPY
     Dates: start: 19920101
  6. ALLEGRA [Concomitant]
     Indication: HYPERSENSITIVITY
  7. MOTRIN [Concomitant]
     Indication: ARTHRALGIA
     Dates: start: 19990101
  8. MOTRIN [Concomitant]
     Indication: RHEUMATOID ARTHRITIS
     Dates: start: 19990101
  9. SYNTHROID [Concomitant]
     Indication: HYPOTHYROIDISM

REACTIONS (17)
  - ABDOMINAL PAIN UPPER [None]
  - ANGINA UNSTABLE [None]
  - ASTHENIA [None]
  - CARDIAC MURMUR [None]
  - CHEST PAIN [None]
  - CHEST X-RAY ABNORMAL [None]
  - DIZZINESS [None]
  - DYSPNOEA [None]
  - HEADACHE [None]
  - HYPERTENSION [None]
  - MITRAL VALVE INCOMPETENCE [None]
  - OSTEOARTHRITIS [None]
  - PARAESTHESIA [None]
  - TINNITUS [None]
  - TRICUSPID VALVE INCOMPETENCE [None]
  - VENTRICULAR HYPERTROPHY [None]
  - VISION BLURRED [None]
